FAERS Safety Report 9140287 (Version 1)
Quarter: 2013Q1

REPORT INFORMATION
  Report Type: Spontaneous
  Country: FR (occurrence: FR)
  Receive Date: 20130305
  Receipt Date: 20130305
  Transmission Date: 20140127
  Serious: Yes (Hospitalization, Disabling, Other)
  Sender: FDA-Public Use
  Company Number: FR-ASTRAZENECA-2013SE13358

PATIENT
  Age: 48 Year
  Sex: Female

DRUGS (4)
  1. XEROQUEL [Suspect]
     Indication: BIPOLAR DISORDER
     Route: 048
     Dates: start: 201211, end: 201301
  2. TERALITHE [Suspect]
     Indication: BIPOLAR DISORDER
     Route: 048
     Dates: end: 20130110
  3. CYNOMEL [Concomitant]
  4. PARIET [Concomitant]

REACTIONS (8)
  - Cerebellar syndrome [Not Recovered/Not Resolved]
  - Fall [Unknown]
  - Head injury [Unknown]
  - Confusional state [Unknown]
  - Renal failure acute [Unknown]
  - Inflammation [Unknown]
  - Wernicke^s encephalopathy [Unknown]
  - Gastroenteritis [Unknown]
